FAERS Safety Report 8895377 (Version 1)
Quarter: 2012Q4

REPORT INFORMATION
  Report Type: 
  Country: AU (occurrence: AU)
  Receive Date: 20121108
  Receipt Date: 20121108
  Transmission Date: 20130627
  Serious: Yes (Life-Threatening)
  Sender: FDA-Public Use
  Company Number: AU-BAXTER-2012BAX022035

PATIENT
  Age: 53 Year
  Sex: Male
  Weight: 86 kg

DRUGS (5)
  1. BAXTER 0.9% SODIUM CHLORIDE 450MG_50ML INJECTION BP BAG AHB1306_AHB136 [Suspect]
     Indication: MEDICATION DILUTION
     Route: 042
     Dates: start: 20120727, end: 20120727
  2. CISPLATIN [Suspect]
     Indication: LUNG CANCER
     Route: 042
     Dates: start: 20120727, end: 20120727
  3. DEXAMETHASONE [Suspect]
     Indication: PREMEDICATION
     Route: 048
     Dates: start: 20120727, end: 20120727
  4. APREPITANT [Concomitant]
     Indication: PREMEDICATION
     Route: 048
     Dates: start: 20120727, end: 20120727
  5. GRANISETRON [Concomitant]
     Indication: PREMEDICATION
     Route: 042
     Dates: start: 20120727, end: 20120727

REACTIONS (4)
  - Chest discomfort [Recovered/Resolved]
  - Flushing [Recovered/Resolved]
  - Chills [Recovered/Resolved]
  - Dyspnoea [Recovered/Resolved]
